FAERS Safety Report 4763488-2 (Version None)
Quarter: 2005Q3

REPORT INFORMATION
  Report Type: 
  Country: None (occurrence: None)
  Receive Date: 20050908
  Receipt Date: 20050831
  Transmission Date: 20060218
  Serious: Yes (Other)
  Sender: FDA-Public Use
  Company Number: JP-BOEHRINGER INGELHEIM PHARMACEUTICALS, INC.-2005-BP-15523YA

PATIENT
  Sex: Male

DRUGS (2)
  1. HARNAL [Suspect]
     Indication: BENIGN PROSTATIC HYPERPLASIA
     Route: 048
     Dates: start: 20050126
  2. HARNAL [Suspect]
     Indication: DYSURIA

REACTIONS (1)
  - PROSTATE CANCER [None]
